FAERS Safety Report 9064817 (Version 1)
Quarter: 2013Q1

REPORT INFORMATION
  Report Type: Spontaneous
  Country: US (occurrence: US)
  Receive Date: 20130130
  Receipt Date: 20130130
  Transmission Date: 20140127
  Serious: Yes (Other)
  Sender: FDA-Public Use
  Company Number: US-BAYER-2013-009909

PATIENT
  Age: 44 Year
  Sex: Male
  Weight: 95.24 kg

DRUGS (4)
  1. ALEVE CAPLET/TABLET,MIDOL EXTENDED RELIEF CAPLET [Suspect]
     Indication: BACK PAIN
     Dosage: 2 DF, PRN
     Route: 048
     Dates: start: 20130122
  2. LISINOPRIL [Concomitant]
  3. NIFEDICAL XL [Concomitant]
  4. NYQUIL [Concomitant]

REACTIONS (2)
  - Swollen tear duct [Recovered/Resolved]
  - Eye swelling [Recovered/Resolved]
